FAERS Safety Report 9029160 (Version 1)
Quarter: 2013Q1

REPORT INFORMATION
  Report Type: Spontaneous
  Country: US (occurrence: US)
  Receive Date: 20130125
  Receipt Date: 20130125
  Transmission Date: 20140127
  Serious: No
  Sender: FDA-Public Use
  Company Number: US-JNJFOC-20130109863

PATIENT
  Sex: Male

DRUGS (1)
  1. DURAGESIC [Suspect]
     Indication: PAIN
     Route: 062
     Dates: start: 2009

REACTIONS (3)
  - Product quality issue [Unknown]
  - Wrong technique in drug usage process [Unknown]
  - Wrong technique in drug usage process [Not Recovered/Not Resolved]
